FAERS Safety Report 20935780 (Version 7)
Quarter: 2023Q2

REPORT INFORMATION
  Report Type: Other
  Country: CA (occurrence: None)
  Receive Date: 20220609
  Receipt Date: 20230627
  Transmission Date: 20230722
  Serious: Yes (Other)
  Sender: FDA-Public Use
  Company Number: CA-ROCHE-3111611

PATIENT
  Sex: Male

DRUGS (1)
  1. OCREVUS [Suspect]
     Active Substance: OCRELIZUMAB
     Indication: Relapsing-remitting multiple sclerosis
     Dosage: 300 MG AT DAY 0 AND 14, THEN 600 MG EVERY 6 MONTH
     Route: 042
     Dates: start: 20220106

REACTIONS (14)
  - Seizure [Unknown]
  - Neurogenic bladder [Unknown]
  - Progressive multiple sclerosis [Unknown]
  - COVID-19 [Recovered/Resolved]
  - Scab [Not Recovered/Not Resolved]
  - Drug hypersensitivity [Unknown]
  - Arthropod bite [Not Recovered/Not Resolved]
  - Electric shock sensation [Unknown]
  - Skin bacterial infection [Recovered/Resolved]
  - Gait disturbance [Unknown]
  - Neuralgia [Unknown]
  - Skin laceration [Unknown]
  - Vessel puncture site bruise [Unknown]
  - Multiple sclerosis [Unknown]
